FAERS Safety Report 9916048 (Version 1)
Quarter: 2014Q1

REPORT INFORMATION
  Report Type: Spontaneous
  Country: US (occurrence: None)
  Receive Date: 20140219
  Receipt Date: 20140219
  Transmission Date: 20141002
  Serious: Yes (Disabling)
  Sender: FDA-Public Use
  Company Number: None

PATIENT
  Age: 61 Year
  Sex: Female
  Weight: 54.43 kg

DRUGS (1)
  1. CIPROFLOXACIN [Suspect]
     Indication: KIDNEY INFECTION
     Dates: start: 20140207, end: 20140212

REACTIONS (5)
  - Loss of control of legs [None]
  - Heart rate increased [None]
  - Vision blurred [None]
  - Sensory disturbance [None]
  - Crying [None]
